FAERS Safety Report 17303331 (Version 1)
Quarter: 2020Q1

REPORT INFORMATION
  Report Type: Report from Study
  Country: CA (occurrence: CA)
  Receive Date: 20200122
  Receipt Date: 20200122
  Transmission Date: 20200409
  Serious: Yes (Other)
  Sender: FDA-Public Use
  Company Number: CA-NALPROPION PHARMACEUTICALS INC.-2020-009443

PATIENT

DRUGS (4)
  1. CONTRAVE [Suspect]
     Active Substance: BUPROPION HYDROCHLORIDE\NALTREXONE HYDROCHLORIDE
     Dosage: STRENGTH 90/8 MG, STARTED APPROX ON 03/DEC/2019 AND STOPPED ON APPROX 07/DEC/2019
     Route: 048
     Dates: start: 201912, end: 201912
  2. CONTRAVE [Suspect]
     Active Substance: BUPROPION HYDROCHLORIDE\NALTREXONE HYDROCHLORIDE
     Indication: WEIGHT CONTROL
     Dosage: STRENGTH 90/8 MG, STARTED APPROX ON 26/NOV/2019 AND STOPPED ON APPROX 02/DEC/2019
     Route: 048
     Dates: start: 201911, end: 201912
  3. CYCLOBENZAPRINE. [Concomitant]
     Active Substance: CYCLOBENZAPRINE
     Indication: HYPOTONIA
     Dosage: 10 MG
     Route: 048
  4. NAPROXEN. [Concomitant]
     Active Substance: NAPROXEN
     Indication: PRODUCT USED FOR UNKNOWN INDICATION
     Dosage: UNK
     Route: 048

REACTIONS (5)
  - Road traffic accident [Unknown]
  - Malaise [Recovering/Resolving]
  - Bronchitis [Recovering/Resolving]
  - Therapy cessation [Unknown]
  - Concussion [Unknown]

NARRATIVE: CASE EVENT DATE: 2019
